FAERS Safety Report 10030850 (Version 1)
Quarter: 2014Q1

REPORT INFORMATION
  Report Type: Spontaneous
  Country: US (occurrence: US)
  Receive Date: 20140323
  Receipt Date: 20140323
  Transmission Date: 20141002
  Serious: No
  Sender: FDA-Public Use
  Company Number: US-ALLERGAN-1314933US

PATIENT
  Age: 66 Year
  Sex: Female

DRUGS (2)
  1. LATISSE 0.03% [Suspect]
     Indication: GROWTH OF EYELASHES
     Dosage: 2 GTT, UNK
     Route: 061
  2. ARTIFICIAL TEARS                   /00445101/ [Concomitant]
     Indication: DRY EYE

REACTIONS (5)
  - Sensory disturbance [Recovering/Resolving]
  - Skin discolouration [Recovering/Resolving]
  - Eyelids pruritus [Recovering/Resolving]
  - Skin hyperpigmentation [Recovering/Resolving]
  - Eyelid irritation [Recovering/Resolving]
